FAERS Safety Report 10620098 (Version 3)
Quarter: 2015Q4

REPORT INFORMATION
  Report Type: Spontaneous
  Country: BR (occurrence: BR)
  Receive Date: 20141202
  Receipt Date: 20151117
  Transmission Date: 20160304
  Serious: Yes (Life-Threatening, Hospitalization, Other)
  Sender: FDA-Public Use
  Company Number: BR-ASTRAZENECA-2014SE90919

PATIENT
  Age: 699 Month
  Sex: Female

DRUGS (3)
  1. SELOZOK [Interacting]
     Active Substance: METOPROLOL SUCCINATE
     Indication: VENTRICULAR ARRHYTHMIA
     Route: 048
     Dates: start: 201312
  2. PROPRANOLOL [Suspect]
     Active Substance: PROPRANOLOL\PROPRANOLOL HYDROCHLORIDE
     Indication: ARRHYTHMIA
     Route: 048
     Dates: start: 1974, end: 201312
  3. PAROXETINE [Interacting]
     Active Substance: PAROXETINE\PAROXETINE HYDROCHLORIDE
     Indication: NERVOUS SYSTEM DISORDER
     Route: 065
     Dates: start: 201406, end: 201406

REACTIONS (18)
  - Tonsillar disorder [Recovered/Resolved]
  - Drug ineffective [Recovered/Resolved]
  - Appendix disorder [Recovered/Resolved]
  - Skin disorder [Not Recovered/Not Resolved]
  - Alopecia [Not Recovered/Not Resolved]
  - Peripheral swelling [Not Recovered/Not Resolved]
  - Ventricular arrhythmia [Recovered/Resolved]
  - Road traffic accident [Recovered/Resolved]
  - Renal disorder [Recovered/Resolved]
  - Drug interaction [Recovered/Resolved]
  - Rash [Not Recovered/Not Resolved]
  - Shock [Recovered/Resolved with Sequelae]
  - Adenoidal disorder [Recovered/Resolved]
  - Off label use [Not Recovered/Not Resolved]
  - Adrenal disorder [Recovered/Resolved]
  - Liver disorder [Recovered/Resolved]
  - Mental disorder [Recovered/Resolved]
  - Aphonia [Not Recovered/Not Resolved]

NARRATIVE: CASE EVENT DATE: 19840626
